FAERS Safety Report 8538674 (Version 3)
Quarter: 2013Q2

REPORT INFORMATION
  Report Type: Spontaneous
  Country: US (occurrence: None)
  Receive Date: 20120315
  Receipt Date: 20120703
  Transmission Date: 20140414
  Serious: No
  Sender: FDA-Public Use
  Company Number: PHHY2011US45567

PATIENT
  Age: 41 Year
  Sex: Male

DRUGS (12)
  1. GILENYA [Suspect]
     Route: 048
     Dates: start: 20111014
  2. VITAMINS [Concomitant]
  3. VITAMINS B3 (NO INGREDIENTS/SUBSTANCES) [Concomitant]
  4. ZINC (ZINC) [Concomitant]
  5. VITAMIN C [Concomitant]
  6. VITAMIN B12 (CYANOCOBALAMIN) [Concomitant]
  7. ASPIRIN BAYER (ACETYLSALICYLIC ACID) [Concomitant]
  8. FISH OIL (FISH OIL) [Concomitant]
  9. ECHINACEA (ECHINACEA ANGUSTIFOLIA) [Concomitant]
  10. VITAMIN D3 (COLECALCIFEROL) [Concomitant]
  11. COQ10 (UBIDECARENONE) [Concomitant]
  12. VITAMIN B2 (RIBOFLAVIN) [Concomitant]

REACTIONS (3)
  - MUSCLE TWITCHING [None]
  - Gait disturbance [None]
  - Drug ineffective [None]
